FAERS Safety Report 11152809 (Version 1)
Quarter: 2015Q2

REPORT INFORMATION
  Report Type: Spontaneous
  Country: BR (occurrence: BR)
  Receive Date: 20150601
  Receipt Date: 20150601
  Transmission Date: 20150821
  Serious: Yes (Hospitalization)
  Sender: FDA-Public Use
  Company Number: BR-PFIZER INC-2015181487

PATIENT
  Age: 57 Year
  Sex: Female
  Weight: 50 kg

DRUGS (2)
  1. EFFEXOR XR [Suspect]
     Active Substance: VENLAFAXINE HYDROCHLORIDE
     Indication: DEPRESSION
     Dosage: ONE TABLET (75 MG), DAILY
     Route: 048
     Dates: start: 2007
  2. ROHYDORM [Concomitant]
     Indication: SEDATIVE THERAPY
     Dosage: 1 TABLET (UNSPECIFIED DOSE), DAILY
     Dates: start: 2007

REACTIONS (2)
  - Dengue fever [Not Recovered/Not Resolved]
  - Osteoporosis [Unknown]

NARRATIVE: CASE EVENT DATE: 2013
